FAERS Safety Report 18883042 (Version 1)
Quarter: 2021Q1

REPORT INFORMATION
  Report Type: Other
  Country: CN (occurrence: CN)
  Receive Date: 20210212
  Receipt Date: 20210212
  Transmission Date: 20210420
  Serious: Yes (Other)
  Sender: FDA-Public Use
  Company Number: CN-ROCHE-2763080

PATIENT

DRUGS (6)
  1. VERTEPORFIN [Concomitant]
     Active Substance: VERTEPORFIN
     Route: 040
  2. POVIDONE?IODINE. [Concomitant]
     Active Substance: POVIDONE-IODINE
  3. PROPARACAINE HYDROCHLORIDE. [Concomitant]
     Active Substance: PROPARACAINE HYDROCHLORIDE
  4. SODIUM CHLORIDE. [Concomitant]
     Active Substance: SODIUM CHLORIDE
  5. TOBRAMYCIN. [Suspect]
     Active Substance: TOBRAMYCIN
     Indication: MACULOPATHY
     Dosage: 1DF=1 DROPS
     Route: 065
  6. BEVACIZUMAB. [Suspect]
     Active Substance: BEVACIZUMAB
     Indication: MACULOPATHY
     Route: 042

REACTIONS (1)
  - Conjunctival haemorrhage [Unknown]
